FAERS Safety Report 10068703 (Version 1)
Quarter: 2014Q2

REPORT INFORMATION
  Report Type: Spontaneous
  Country: US (occurrence: US)
  Receive Date: 20140409
  Receipt Date: 20140409
  Transmission Date: 20141212
  Serious: No
  Sender: FDA-Public Use
  Company Number: US-MYLANLABS-2014S1004399

PATIENT
  Sex: Female
  Weight: 98.88 kg

DRUGS (4)
  1. METOPROLOL SUCCINATE EXTENDED-RELEASE TABLETS USP [Suspect]
     Indication: CARDIAC DISORDER
     Route: 048
     Dates: start: 2012
  2. GABAPENTIN [Concomitant]
     Indication: NEUROPATHY PERIPHERAL
  3. ATORVASTATIN CALCIUM [Concomitant]
     Indication: BLOOD CHOLESTEROL
  4. HUMULIN INSULIN [Concomitant]
     Indication: DIABETES MELLITUS

REACTIONS (1)
  - Foreign body [Not Recovered/Not Resolved]
